FAERS Safety Report 11527635 (Version 1)
Quarter: 2015Q3

REPORT INFORMATION
  Report Type: Spontaneous
  Country: US (occurrence: US)
  Receive Date: 20150903
  Receipt Date: 20150903
  Transmission Date: 20151125
  Serious: No
  Sender: FDA-Public Use
  Company Number: US-ELI_LILLY_AND_COMPANY-US200905000449

PATIENT
  Age: 84 Year
  Sex: Male

DRUGS (2)
  1. LANTUS [Concomitant]
     Active Substance: INSULIN GLARGINE
  2. HUMALOG [Suspect]
     Active Substance: INSULIN LISPRO
     Dosage: UNK, UNK
     Dates: start: 2004

REACTIONS (10)
  - Tremor [Recovered/Resolved]
  - Asthenia [Recovered/Resolved]
  - Malaise [Not Recovered/Not Resolved]
  - Blood glucose increased [Recovered/Resolved]
  - Altered state of consciousness [Recovered/Resolved]
  - Cold sweat [Not Recovered/Not Resolved]
  - Disorientation [Recovered/Resolved]
  - Dizziness [Not Recovered/Not Resolved]
  - Anxiety [Not Recovered/Not Resolved]
  - Adverse reaction [Recovered/Resolved]

NARRATIVE: CASE EVENT DATE: 2007
